FAERS Safety Report 26185875 (Version 1)
Quarter: 2025Q4

REPORT INFORMATION
  Report Type: Spontaneous
  Country: AU (occurrence: AU)
  Receive Date: 20251222
  Receipt Date: 20251222
  Transmission Date: 20260117
  Serious: Yes (Death, Other)
  Sender: ROCHE
  Company Number: AU-ROCHE-10000463213

PATIENT

DRUGS (2)
  1. ATEZOLIZUMAB [Suspect]
     Active Substance: ATEZOLIZUMAB
     Indication: Hepatocellular carcinoma
  2. BEVACIZUMAB [Suspect]
     Active Substance: BEVACIZUMAB
     Indication: Hepatocellular carcinoma

REACTIONS (6)
  - Adverse event [Fatal]
  - Drug effective for unapproved indication [Unknown]
  - Hepatocellular carcinoma [Unknown]
  - Immune-mediated adverse reaction [Fatal]
  - Hepatic failure [Unknown]
  - Off label use [Unknown]
